FAERS Safety Report 17620414 (Version 7)
Quarter: 2021Q3

REPORT INFORMATION
  Report Type: Report from Study
  Country: CN (occurrence: CN)
  Receive Date: 20200403
  Receipt Date: 20210728
  Transmission Date: 20211014
  Serious: Yes (Death, Hospitalization)
  Sender: FDA-Public Use
  Company Number: CN-ROCHE-2563632

PATIENT
  Age: 75 Year
  Sex: Female
  Weight: 69 kg

DRUGS (34)
  1. CARBOPLATIN. [Suspect]
     Active Substance: CARBOPLATIN
     Indication: OVARIAN CANCER
     Dosage: ON 06/MAR/2019, THE PATIENT RECEIVED MOST RECENT DOSE 590 MG PRIOR TO EVENT. ?DOSE TO ACHIEVE A TARG
     Route: 042
     Dates: start: 20181120
  2. LEUCOGEN [Concomitant]
     Active Substance: LEUCOGEN
     Indication: THROMBOCYTOPENIA
     Dates: start: 20190510
  3. REDUCED GLUTATHIONE SODIUM [Concomitant]
     Active Substance: GLUTATHIONE
     Dates: start: 20191204, end: 20191204
  4. PLACEBO [Suspect]
     Active Substance: UNSPECIFIED INGREDIENT
     Indication: OVARIAN CANCER
     Dosage: ON 04/FEB/2020, THE PATIENT RECEIVED DOSE OF ATEZOLIZUMAB MG PRIOR TO SAE.
     Route: 042
     Dates: start: 20181120
  5. ANGELICA [Concomitant]
     Indication: LEUKOPENIA
     Dates: start: 20190308
  6. CALCIUM CARBONATE/VITAMIN D3 [Concomitant]
     Active Substance: CALCIUM CARBONATE\CHOLECALCIFEROL
     Dates: start: 20190329
  7. MUNG BEAN. [Concomitant]
     Active Substance: MUNG BEAN
     Dates: start: 20190718
  8. LEVOTHYROXINE SODIUM. [Concomitant]
     Active Substance: LEVOTHYROXINE SODIUM
     Indication: HYPOTHYROIDISM
     Dates: start: 20191001
  9. REDUCED GLUTATHIONE SODIUM [Concomitant]
     Active Substance: GLUTATHIONE
     Dates: start: 20191225, end: 20191225
  10. LANSOPRAZOLE. [Concomitant]
     Active Substance: LANSOPRAZOLE
     Dates: start: 20191225, end: 20191225
  11. POTASSIUM CHLORIDE. [Concomitant]
     Active Substance: POTASSIUM CHLORIDE
     Dates: start: 20200115, end: 20200115
  12. AMIFOSTINE. [Concomitant]
     Active Substance: AMIFOSTINE
     Indication: PROPHYLAXIS
     Dates: start: 20191113, end: 20191113
  13. PACLITAXEL. [Suspect]
     Active Substance: PACLITAXEL
     Indication: OVARIAN CANCER
     Dosage: ON 06/MAR/2019, THE PATIENT RECEIVED MOST RECENT DOSE 300 MG PRIOR TO EVENT.
     Route: 042
     Dates: start: 20181120
  14. RADIX SOPHORAE FLAVESCENTIS [Concomitant]
     Indication: LEUKOPENIA
     Dates: start: 20190308
  15. ASTRAGALUS [Concomitant]
     Indication: LEUKOPENIA
     Dates: start: 20190308
  16. RADIX ISATIDIS [Concomitant]
     Dates: start: 20190718
  17. REDUCED GLUTATHIONE SODIUM [Concomitant]
     Active Substance: GLUTATHIONE
     Dates: start: 20200115, end: 20200115
  18. POTASSIUM CHLORIDE. [Concomitant]
     Active Substance: POTASSIUM CHLORIDE
     Indication: PROPHYLAXIS
     Dates: start: 20191113, end: 20191113
  19. OMEPRAZOLE SODIUM [Concomitant]
     Active Substance: OMEPRAZOLE SODIUM
     Indication: PROPHYLAXIS
     Dates: start: 20200115, end: 20200115
  20. OMEPRAZOLE SODIUM [Concomitant]
     Active Substance: OMEPRAZOLE SODIUM
     Dates: start: 20200204, end: 20200204
  21. BEVACIZUMAB. [Suspect]
     Active Substance: BEVACIZUMAB
     Indication: OVARIAN CANCER
     Dosage: ON 04/FEB/2020, THE PATIENT RECEIVED DOSE 990 MG PRIOR TO SAE.
     Route: 042
     Dates: start: 20181211
  22. EJIAO [Concomitant]
     Indication: LEUKOPENIA
     Dates: start: 20190308
  23. BLOOD GINSENG [Concomitant]
     Indication: LEUKOPENIA
     Dates: start: 20190308
  24. BERBERINE HYDROCHLORIDE [Concomitant]
     Active Substance: BERBERINE
     Indication: DIARRHOEA
     Dates: start: 20190803, end: 20200205
  25. LANSOPRAZOLE. [Concomitant]
     Active Substance: LANSOPRAZOLE
     Indication: PROPHYLAXIS
     Dates: start: 20191113, end: 20191113
  26. LANSOPRAZOLE. [Concomitant]
     Active Substance: LANSOPRAZOLE
     Dates: start: 20191204, end: 20191204
  27. JUJUBE [Concomitant]
     Indication: LEUKOPENIA
     Dates: start: 20190308
  28. REDUCED GLUTATHIONE SODIUM [Concomitant]
     Active Substance: GLUTATHIONE
     Indication: PROPHYLAXIS
     Dates: start: 20191113, end: 20191113
  29. REDUCED GLUTATHIONE SODIUM [Concomitant]
     Active Substance: GLUTATHIONE
     Dates: start: 20200204, end: 20200204
  30. POTASSIUM CHLORIDE. [Concomitant]
     Active Substance: POTASSIUM CHLORIDE
     Dates: start: 20191204, end: 20191204
  31. RADIX BUPLEURI [Concomitant]
     Active Substance: HERBALS
     Dates: start: 20190718
  32. POTASSIUM CHLORIDE. [Concomitant]
     Active Substance: POTASSIUM CHLORIDE
     Dates: start: 20191225, end: 20191225
  33. LEVAMLODIPINE MALEATE. [Concomitant]
     Active Substance: LEVAMLODIPINE MALEATE
     Dates: start: 2008
  34. POTASSIUM CHLORIDE. [Concomitant]
     Active Substance: POTASSIUM CHLORIDE
     Dates: start: 20200204, end: 20200204

REACTIONS (1)
  - Immune-mediated nephritis [Recovered/Resolved]

NARRATIVE: CASE EVENT DATE: 20191203
